FAERS Safety Report 10446009 (Version 3)
Quarter: 2015Q2

REPORT INFORMATION
  Report Type: Spontaneous
  Country: US (occurrence: US)
  Receive Date: 20140910
  Receipt Date: 20150402
  Transmission Date: 20150821
  Serious: Yes (Death, Hospitalization, Other)
  Sender: FDA-Public Use
  Company Number: US-009507513-1409USA004486

PATIENT
  Sex: Female
  Weight: 59.41 kg

DRUGS (3)
  1. JANUVIA [Suspect]
     Active Substance: SITAGLIPTIN PHOSPHATE
     Indication: TYPE 2 DIABETES MELLITUS
     Dosage: 100 MG, DAILY
     Route: 048
     Dates: start: 20090821, end: 20130611
  2. JANUMET [Suspect]
     Active Substance: METFORMIN HYDROCHLORIDE\SITAGLIPTIN PHOSPHATE
     Indication: TYPE 2 DIABETES MELLITUS
     Dosage: 50/500 MG, DAILY
     Route: 048
     Dates: start: 20100105, end: 20100627
  3. JANUVIA [Suspect]
     Active Substance: SITAGLIPTIN PHOSPHATE
     Dosage: 100 MG, 0.5 TAB DAILY
     Route: 048
     Dates: start: 20130611, end: 20130620

REACTIONS (49)
  - Metastases to lung [Unknown]
  - Blindness unilateral [Unknown]
  - Brain stem stroke [Recovered/Resolved with Sequelae]
  - Failure to thrive [Unknown]
  - Lymphadenopathy [Unknown]
  - Ascites [Unknown]
  - Uterine leiomyoma [Unknown]
  - Spinal osteoarthritis [Unknown]
  - Hepatic cyst [Unknown]
  - Disease complication [Fatal]
  - Rectal haemorrhage [Unknown]
  - Systemic inflammatory response syndrome [Unknown]
  - Acute kidney injury [Recovering/Resolving]
  - Cataract operation [Unknown]
  - Osteoarthritis [Unknown]
  - Faecaloma [Unknown]
  - Cataract [Unknown]
  - Inappropriate schedule of drug administration [Unknown]
  - Metabolic acidosis [Recovering/Resolving]
  - Pancreatitis [Unknown]
  - Weight decreased [Unknown]
  - Dystrophic calcification [Unknown]
  - Scoliosis [Unknown]
  - Cardiomegaly [Unknown]
  - Atelectasis [Unknown]
  - Pancreatic carcinoma [Fatal]
  - Essential hypertension [Unknown]
  - Dementia [Unknown]
  - Exercise tolerance decreased [Unknown]
  - Pleural effusion [Unknown]
  - Left ventricular hypertrophy [Unknown]
  - Metastases to liver [Unknown]
  - Glomus tumour [Unknown]
  - Hypercholesterolaemia [Unknown]
  - Hypotension [Unknown]
  - Performance status decreased [Unknown]
  - Pericardial effusion [Unknown]
  - Renal cyst [Unknown]
  - Haemorrhagic anaemia [Unknown]
  - Normochromic normocytic anaemia [Not Recovered/Not Resolved]
  - Constipation [Recovering/Resolving]
  - Adrenal insufficiency [Unknown]
  - Metastases to stomach [Unknown]
  - Dehydration [Unknown]
  - Tumour excision [Recovered/Resolved]
  - Lumbar spinal stenosis [Unknown]
  - Hypertension [Unknown]
  - Cerebrovascular disorder [Unknown]
  - Nephropathy [Unknown]

NARRATIVE: CASE EVENT DATE: 2009
